FAERS Safety Report 6560116-0 (Version None)
Quarter: 2010Q1

REPORT INFORMATION
  Report Type: 
  Country: None (occurrence: None)
  Receive Date: 20100129
  Receipt Date: 20050315
  Transmission Date: 20100710
  Serious: Yes (Disabling)
  Sender: FDA-Public Use
  Company Number: US-ALLERGAN-200408180

PATIENT
  Age: 46 Year
  Sex: Male
  Weight: 91 kg

DRUGS (13)
  1. BOTOX [Suspect]
     Indication: ANAL FISSURE
     Dosage: 30UNITS, SINGLE
     Route: 030
     Dates: start: 20040817, end: 20040817
  2. PERCOCET [Concomitant]
     Indication: PAIN
     Dates: start: 20040828
  3. LOPERAMIDE [Concomitant]
     Indication: DIARRHOEA
  4. TOPICAL LIDOCAINE [Concomitant]
     Indication: PAIN
     Dosage: 1DF, UNKNOWN
     Route: 061
  5. UNSPECIFIED TOPICAL CORTICOSTEROID CREAM [Concomitant]
     Indication: INFLAMMATION OF WOUND
  6. METHYLPHENIDATE [Concomitant]
     Indication: DEPRESSION
     Dosage: 1DF, UNKNOWN
     Route: 048
  7. CLONAZEPAM [Concomitant]
     Indication: DEPRESSION
     Dosage: 1DF, UNKNOWN
     Route: 048
  8. MYCELEX [Concomitant]
     Indication: ORAL CANDIDIASIS
     Dosage: 1DF, PRN
     Route: 048
  9. BACTRIM DS [Concomitant]
     Indication: PROPHYLAXIS
     Dosage: 1DF, QOD
  10. IBUPROFEN [Concomitant]
     Indication: PAIN
     Dosage: 1DF, UNKNOWN
     Route: 048
  11. LITHIUM [Concomitant]
     Indication: DEPRESSION
     Dosage: DOSE QUANTITY: 1, DOSE UNIT: DF
     Route: 048
  12. DIFLUCAN [Concomitant]
     Indication: ORAL CANDIDIASIS
     Dosage: 1DF, UNKNOWN
     Route: 048
  13. EFFEXOR [Concomitant]
     Indication: DEPRESSION
     Dosage: 1DF, UNKNOWN
     Route: 048

REACTIONS (3)
  - FAECAL INCONTINENCE [None]
  - IMPAIRED HEALING [None]
  - PAIN [None]
